FAERS Safety Report 4764935-2 (Version None)
Quarter: 2005Q3

REPORT INFORMATION
  Report Type: 
  Country: None (occurrence: None)
  Receive Date: 20050909
  Receipt Date: 20050603
  Transmission Date: 20060218
  Serious: Yes (Hospitalization)
  Sender: FDA-Public Use
  Company Number: US-ROCHE-406891

PATIENT
  Age: 58 Year
  Sex: Female
  Weight: 63.5 kg

DRUGS (3)
  1. BONIVA [Suspect]
     Indication: OSTEOPENIA
     Route: 048
     Dates: start: 20050601, end: 20050601
  2. SYNTHROID [Concomitant]
     Indication: THYROIDECTOMY
     Route: 048
  3. ZOLOFT [Concomitant]
     Route: 048

REACTIONS (17)
  - AMNESIA [None]
  - ASTHENIA [None]
  - BONE PAIN [None]
  - BRADYCARDIA [None]
  - CHEST WALL PAIN [None]
  - DIARRHOEA [None]
  - DYSPNOEA [None]
  - FINGER DEFORMITY [None]
  - HYPERSENSITIVITY [None]
  - MUSCLE RIGIDITY [None]
  - MUSCULOSKELETAL PAIN [None]
  - MUSCULOSKELETAL STIFFNESS [None]
  - PALLOR [None]
  - SOMNOLENCE [None]
  - SYNCOPE VASOVAGAL [None]
  - URINARY INCONTINENCE [None]
  - VOMITING [None]
